FAERS Safety Report 23191382 (Version 1)
Quarter: 2023Q4

REPORT INFORMATION
  Report Type: Report from Study
  Country: ES (occurrence: ES)
  Receive Date: 20231116
  Receipt Date: 20231116
  Transmission Date: 20240110
  Serious: Yes (Hospitalization)
  Sender: FDA-Public Use
  Company Number: ES-MYLANLABS-2023M1122157

PATIENT
  Age: 15 Year

DRUGS (3)
  1. VANCOMYCIN [Suspect]
     Active Substance: VANCOMYCIN
     Indication: Device related bacteraemia
     Dosage: 5 MILLIGRAM PER MILLILITRE, QD (SOLUTION, 5 MG/ML EVERY 24H
     Route: 065
  2. VANCOMYCIN [Suspect]
     Active Substance: VANCOMYCIN
     Indication: Streptococcal bacteraemia
  3. HEPARIN [Concomitant]
     Active Substance: HEPARIN SODIUM
     Indication: Anticoagulant therapy
     Dosage: UNK, QD, 50 IU/ML EVERY 24H
     Route: 065

REACTIONS (1)
  - Treatment failure [Unknown]
